FAERS Safety Report 4946973-X (Version None)
Quarter: 2006Q1

REPORT INFORMATION
  Report Type: 
  Country: None (occurrence: None)
  Receive Date: 20060313
  Receipt Date: 20060228
  Transmission Date: 20060701
  Serious: Yes (Other)
  Sender: FDA-Public Use
  Company Number: 2005151233

PATIENT
  Age: 70 Year
  Sex: Male

DRUGS (7)
  1. VIAGRA [Suspect]
     Indication: ERECTILE DYSFUNCTION
     Dosage: (50 MG,), ORAL
     Route: 048
     Dates: start: 20050101, end: 20050101
  2. CIALIS [Suspect]
     Indication: ILL-DEFINED DISORDER
  3. LEVITRA [Suspect]
     Indication: ILL-DEFINED DISORDER
  4. METFORMIN HCL [Concomitant]
  5. TRICYCLIC ANTIDEPRESSANTS (TRICYCLIC ANTIDEPRESSANTS) [Concomitant]
  6. VALSARTAN [Concomitant]
  7. LIPITOR [Concomitant]

REACTIONS (2)
  - DRUG INEFFECTIVE [None]
  - PROSTATE EXAMINATION ABNORMAL [None]
